FAERS Safety Report 6863156-7 (Version None)
Quarter: 2010Q3

REPORT INFORMATION
  Report Type: 
  Country: None (occurrence: None)
  Receive Date: 20100721
  Receipt Date: 20100713
  Transmission Date: 20110219
  Serious: Yes (Hospitalization)
  Sender: FDA-Public Use
  Company Number: US-GILEAD-2010-0030414

PATIENT
  Sex: Male

DRUGS (15)
  1. LETAIRIS [Suspect]
     Indication: PULMONARY ARTERIAL HYPERTENSION
     Route: 048
     Dates: start: 20100513
  2. TYVASO [Concomitant]
  3. RANEXA [Concomitant]
  4. COLACE [Concomitant]
  5. ASPIRIN [Concomitant]
  6. PROMETHAZINE [Concomitant]
  7. LEVOTHYROXINE SODIUM [Concomitant]
  8. METOLAZONE [Concomitant]
  9. DILTIAZEM [Concomitant]
  10. LOVASTATIN [Concomitant]
  11. BUMEX [Concomitant]
  12. COREG [Concomitant]
  13. AMBIEN [Concomitant]
  14. ALDACTONE [Concomitant]
  15. MORPHINE SULFATE [Concomitant]

REACTIONS (5)
  - ABDOMINAL DISTENSION [None]
  - DYSPNOEA [None]
  - FLUID OVERLOAD [None]
  - OEDEMA PERIPHERAL [None]
  - PULMONARY OEDEMA [None]
